FAERS Safety Report 9268861 (Version 1)
Quarter: 2013Q2

REPORT INFORMATION
  Report Type: Spontaneous
  Country: BR (occurrence: BR)
  Receive Date: 20130503
  Receipt Date: 20130503
  Transmission Date: 20140414
  Serious: Yes (Other)
  Sender: FDA-Public Use
  Company Number: PHHY2013BR041532

PATIENT
  Sex: Female

DRUGS (1)
  1. METFORMIN [Suspect]
     Indication: DIABETES MELLITUS MANAGEMENT
     Dosage: 1700 MG, PER DAY

REACTIONS (2)
  - Drug intolerance [Unknown]
  - Maternal exposure during pregnancy [Unknown]
